FAERS Safety Report 10272809 (Version 3)
Quarter: 2014Q4

REPORT INFORMATION
  Report Type: Spontaneous
  Country: US (occurrence: US)
  Receive Date: 20140702
  Receipt Date: 20141029
  Transmission Date: 20150528
  Serious: Yes (Other)
  Sender: FDA-Public Use
  Company Number: US-JNJFOC-20140620984

PATIENT
  Sex: Male

DRUGS (1)
  1. RISPERDAL [Suspect]
     Active Substance: RISPERIDONE
     Indication: PRODUCT USED FOR UNKNOWN INDICATION
     Route: 048
     Dates: start: 2008, end: 2013

REACTIONS (20)
  - Suicidal ideation [Unknown]
  - Cellulitis [Unknown]
  - Deformity [Unknown]
  - Motor dysfunction [Unknown]
  - Mental disorder [Unknown]
  - Semen volume decreased [Not Recovered/Not Resolved]
  - Testicular disorder [Unknown]
  - Emotional distress [Unknown]
  - Sperm concentration decreased [Not Recovered/Not Resolved]
  - Gynaecomastia [Unknown]
  - Chest pain [Unknown]
  - Insomnia [Unknown]
  - Depression [Unknown]
  - Anxiety [Unknown]
  - Testicular pain [Not Recovered/Not Resolved]
  - Erectile dysfunction [Not Recovered/Not Resolved]
  - Gastrointestinal disorder [Unknown]
  - Hyperprolactinaemia [Unknown]
  - Loss of libido [Not Recovered/Not Resolved]
  - Endocrine disorder [Unknown]
